FAERS Safety Report 6450334-4 (Version None)
Quarter: 2009Q4

REPORT INFORMATION
  Report Type: 
  Country: None (occurrence: None)
  Receive Date: 20091123
  Receipt Date: 20091116
  Transmission Date: 20100525
  Serious: Yes (Other)
  Sender: FDA-Public Use
  Company Number: FR-ROCHE-669412

PATIENT
  Age: 62 Year

DRUGS (2)
  1. INTERFERON ALFA [Suspect]
     Dosage: DOSE: 3 MU
     Route: 065
     Dates: start: 19971001
  2. INTERFERON ALFA [Suspect]
     Dosage: DOSE: 3 MU
     Route: 065
     Dates: start: 19981101

REACTIONS (5)
  - BASEDOW'S DISEASE [None]
  - DIPLOPIA [None]
  - HEPATITIS C [None]
  - HYPERTHYROIDISM [None]
  - HYPOTHYROIDISM [None]
